FAERS Safety Report 13525608 (Version 1)
Quarter: 2017Q2

REPORT INFORMATION
  Report Type: Spontaneous
  Country: US (occurrence: US)
  Receive Date: 20170508
  Receipt Date: 20170508
  Transmission Date: 20170830
  Serious: Yes (Death, Other)
  Sender: FDA-Public Use
  Company Number: US-IMPAX LABORATORIES, INC-2017-IPXL-01245

PATIENT
  Age: 55 Year
  Sex: Male

DRUGS (1)
  1. CABERGOLINE. [Suspect]
     Active Substance: CABERGOLINE
     Indication: PROLACTIN-PRODUCING PITUITARY TUMOUR
     Dosage: 0.5 MG, 3 /WEEK
     Route: 065

REACTIONS (6)
  - Pituitary haemorrhage [Unknown]
  - Cavernous sinus thrombosis [Unknown]
  - Cardiac arrest [Fatal]
  - Ophthalmic vein thrombosis [Unknown]
  - Cerebral infarction [Unknown]
  - Respiratory failure [Unknown]
